FAERS Safety Report 17214070 (Version 2)
Quarter: 2020Q1

REPORT INFORMATION
  Report Type: Spontaneous
  Country: US (occurrence: US)
  Receive Date: 20191230
  Receipt Date: 20200103
  Transmission Date: 20200409
  Serious: Yes (Other)
  Sender: FDA-Public Use
  Company Number: US-PFIZER INC-2019557464

PATIENT
  Age: 66 Year
  Sex: Female
  Weight: 77 kg

DRUGS (1)
  1. XELJANZ XR [Suspect]
     Active Substance: TOFACITINIB CITRATE
     Indication: PSORIATIC ARTHROPATHY
     Dosage: 11 MG, 1X/DAY
     Route: 048
     Dates: start: 20190910, end: 20191125

REACTIONS (4)
  - Hepatic enzyme increased [Unknown]
  - Intentional product misuse [Unknown]
  - C-reactive protein increased [Unknown]
  - Amylase increased [Unknown]

NARRATIVE: CASE EVENT DATE: 2019
